FAERS Safety Report 8446489-2 (Version None)
Quarter: 2012Q2

REPORT INFORMATION
  Report Type: 
  Country: None (occurrence: None)
  Receive Date: 20120618
  Receipt Date: 20120417
  Transmission Date: 20120825
  Serious: Yes (Other)
  Sender: FDA-Public Use
  Company Number: US-TEVA-334095USA

PATIENT
  Sex: Female
  Weight: 67.192 kg

DRUGS (3)
  1. ALPRAZOLAM [Concomitant]
     Indication: ANXIETY
     Route: 048
  2. ZOLPIDEM TARTRATE [Concomitant]
     Indication: INSOMNIA
     Route: 048
  3. ACTIQ [Suspect]
     Indication: MIGRAINE
     Route: 002

REACTIONS (6)
  - OFF LABEL USE [None]
  - DRUG DEPENDENCE [None]
  - PHOTOPHOBIA [None]
  - NAUSEA [None]
  - VOMITING [None]
  - VISION BLURRED [None]
